FAERS Safety Report 14659699 (Version 1)
Quarter: 2018Q1

REPORT INFORMATION
  Report Type: Spontaneous
  Country: US (occurrence: US)
  Receive Date: 20180319
  Receipt Date: 20180319
  Transmission Date: 20180509
  Serious: Yes (Other)
  Sender: FDA-Public Use
  Company Number: None

PATIENT
  Age: 48 Year
  Sex: Female
  Weight: 61.23 kg

DRUGS (1)
  1. KRATOM [Suspect]
     Active Substance: MITRAGYNINE\HERBALS

REACTIONS (4)
  - Product label issue [None]
  - Vertigo [None]
  - Nausea [None]
  - Euphoric mood [None]

NARRATIVE: CASE EVENT DATE: 20180316
